FAERS Safety Report 5330912-6 (Version None)
Quarter: 2007Q2

REPORT INFORMATION
  Report Type: 
  Country: None (occurrence: None)
  Receive Date: 20070522
  Receipt Date: 20070507
  Transmission Date: 20071010
  Serious: Yes (Hospitalization, Other)
  Sender: FDA-Public Use
  Company Number: CA-ELI_LILLY_AND_COMPANY-CA200705003060

PATIENT
  Sex: Female

DRUGS (2)
  1. EVISTA [Suspect]
  2. VITAMIN D [Concomitant]

REACTIONS (2)
  - DEEP VEIN THROMBOSIS [None]
  - PANCREATITIS [None]
